FAERS Safety Report 14355208 (Version 1)
Quarter: 2018Q1

REPORT INFORMATION
  Report Type: Spontaneous
  Country: US (occurrence: US)
  Receive Date: 20180104
  Receipt Date: 20180104
  Transmission Date: 20180509
  Serious: Yes (Other)
  Sender: FDA-Public Use
  Company Number: None

PATIENT
  Age: 66 Year
  Sex: Female
  Weight: 65.7 kg

DRUGS (7)
  1. VITAMIN C [Concomitant]
     Active Substance: ASCORBIC ACID
  2. VITAMIN B12 [Concomitant]
     Active Substance: CYANOCOBALAMIN
  3. OSELTAMIVIR PHOSPHAT 75MG CAP [Suspect]
     Active Substance: OSELTAMIVIR PHOSPHATE
     Indication: INFLUENZA
     Dosage: ?          QUANTITY:1 CAPSULE(S);?
     Route: 048
  4. OSELTAMIVIR PHOSPHAT 75MG CAP [Suspect]
     Active Substance: OSELTAMIVIR PHOSPHATE
     Indication: PYREXIA
     Dosage: ?          QUANTITY:1 CAPSULE(S);?
     Route: 048
  5. CALCIUM [Concomitant]
     Active Substance: CALCIUM
  6. VITAMIN D [Concomitant]
     Active Substance: CHOLECALCIFEROL
  7. MILK THISTLE [Concomitant]
     Active Substance: DIETARY SUPPLEMENT\HERBALS\MILK THISTLE

REACTIONS (10)
  - Nausea [None]
  - Insomnia [None]
  - Therapy cessation [None]
  - Dizziness [None]
  - Diarrhoea [None]
  - Abdominal pain upper [None]
  - Cough [None]
  - Ageusia [None]
  - Headache [None]
  - Rash macular [None]

NARRATIVE: CASE EVENT DATE: 20180103
